FAERS Safety Report 14718535 (Version 1)
Quarter: 2018Q2

REPORT INFORMATION
  Report Type: Spontaneous
  Country: CA (occurrence: CA)
  Receive Date: 20180404
  Receipt Date: 20180404
  Transmission Date: 20180711
  Serious: Yes (Death)
  Sender: FDA-Public Use
  Company Number: CA-TEVA-2018-CA-875662

PATIENT
  Age: 22 Year
  Weight: 73 kg

DRUGS (2)
  1. MORPHINE [Suspect]
     Active Substance: MORPHINE
     Route: 065
  2. ALPRAZOLAM. [Suspect]
     Active Substance: ALPRAZOLAM
     Route: 065

REACTIONS (4)
  - Benzodiazepine drug level increased [Fatal]
  - Opiates positive [Fatal]
  - Toxicity to various agents [Fatal]
  - Postmortem blood drug level increased [Fatal]
